FAERS Safety Report 6676749-7 (Version None)
Quarter: 2010Q2

REPORT INFORMATION
  Report Type: 
  Country: None (occurrence: None)
  Receive Date: 20100409
  Receipt Date: 20100409
  Transmission Date: 20101027
  Serious: Yes (Life-Threatening)
  Sender: FDA-Public Use
  Company Number: None

PATIENT
  Age: 70 Year
  Sex: Male
  Weight: 108.8633 kg

DRUGS (1)
  1. REMICADE [Suspect]
     Indication: RHEUMATOID ARTHRITIS
     Dosage: 3MG/KG Q 8 WEEKLY IV
     Route: 042
     Dates: start: 20000101, end: 20100101

REACTIONS (4)
  - HODGKIN'S DISEASE [None]
  - NIGHT SWEATS [None]
  - PYREXIA [None]
  - WEIGHT DECREASED [None]
